FAERS Safety Report 16857711 (Version 4)
Quarter: 2019Q4

REPORT INFORMATION
  Report Type: Spontaneous
  Country: US (occurrence: US)
  Receive Date: 20190926
  Receipt Date: 20191121
  Transmission Date: 20200122
  Serious: Yes (Death, Other)
  Sender: FDA-Public Use
  Company Number: US-TAKEDA-2019TUS039691

PATIENT

DRUGS (58)
  1. LEVOTHYROXINE. [Concomitant]
     Active Substance: LEVOTHYROXINE
  2. MONTELUKAST [Concomitant]
     Active Substance: MONTELUKAST SODIUM
  3. PROMETHAZINE AND CODEINE [Concomitant]
     Active Substance: CODEINE PHOSPHATE\PROMETHAZINE HYDROCHLORIDE
  4. CIPROFLOXACIN. [Concomitant]
     Active Substance: CIPROFLOXACIN
  5. PEPCID                             /00305201/ [Concomitant]
     Active Substance: ALUMINUM HYDROXIDE\MAGNESIUM CARBONATE
  6. DOXYCYCLINE HYCLATE. [Concomitant]
     Active Substance: DOXYCYCLINE HYCLATE
  7. IPRATROPIUM [Concomitant]
     Active Substance: IPRATROPIUM
  8. AMOXICILLINA ACIDO CLAV. [Concomitant]
     Active Substance: AMOXICILLIN\CLAVULANATE POTASSIUM
  9. SIMVASTATIN. [Concomitant]
     Active Substance: SIMVASTATIN
  10. AMOXICILLIN. [Concomitant]
     Active Substance: AMOXICILLIN
  11. PEPCID AC [Concomitant]
     Active Substance: FAMOTIDINE
  12. ZANTAC [Concomitant]
     Active Substance: RANITIDINE HYDROCHLORIDE
  13. PANTOPRAZOLE [Suspect]
     Active Substance: PANTOPRAZOLE
     Indication: GASTROOESOPHAGEAL REFLUX DISEASE
     Dosage: 40 MILLIGRAM, QD
     Route: 048
     Dates: end: 201703
  14. OMEPRAZOLE. [Suspect]
     Active Substance: OMEPRAZOLE
     Indication: GASTROOESOPHAGEAL REFLUX DISEASE
     Dosage: 20 MILLIGRAM, QD
     Route: 048
     Dates: start: 2012, end: 2017
  15. FERROUS SULFATE. [Concomitant]
     Active Substance: FERROUS SULFATE
  16. CARVEDILOL. [Concomitant]
     Active Substance: CARVEDILOL
  17. PREDNISONE. [Concomitant]
     Active Substance: PREDNISONE
  18. FENOFIBRATE. [Concomitant]
     Active Substance: FENOFIBRATE
  19. PREDNISOLONE. [Concomitant]
     Active Substance: PREDNISOLONE
  20. LEVEMIR [Concomitant]
     Active Substance: INSULIN DETEMIR
  21. IPRATROPIUM BROMIDE/ALBUTEROL SULFATE [Concomitant]
     Active Substance: ALBUTEROL SULFATE\IPRATROPIUM BROMIDE
  22. SILVER SULFADIAZINE. [Concomitant]
     Active Substance: SILVER SULFADIAZINE
  23. TAGAMET HB [Concomitant]
     Active Substance: CIMETIDINE
  24. LOSARTAN. [Concomitant]
     Active Substance: LOSARTAN
  25. ADVAIR HFA [Concomitant]
     Active Substance: FLUTICASONE PROPIONATE\SALMETEROL XINAFOATE
  26. WARFARIN [Concomitant]
     Active Substance: WARFARIN
  27. PRILOSEC [Suspect]
     Active Substance: OMEPRAZOLE MAGNESIUM
     Indication: PRODUCT USED FOR UNKNOWN INDICATION
     Dosage: UNK
     Route: 048
  28. NOVOLOG [Concomitant]
     Active Substance: INSULIN ASPART
     Indication: DIABETES MELLITUS
  29. SINGULAIR [Concomitant]
     Active Substance: MONTELUKAST SODIUM
  30. NYSTATIN. [Concomitant]
     Active Substance: NYSTATIN
  31. CITALOPRAM [Concomitant]
     Active Substance: CITALOPRAM HYDROBROMIDE
     Indication: ANTIDEPRESSANT THERAPY
     Dosage: UNK
     Dates: start: 20110123, end: 20140211
  32. MUCIPRIN [Concomitant]
  33. TEKTURNA [Concomitant]
     Active Substance: ALISKIREN HEMIFUMARATE
  34. SULFAMETHOXAZOLE [Concomitant]
     Active Substance: SULFAMETHOXAZOLE
  35. METOPROLOL. [Concomitant]
     Active Substance: METOPROLOL
  36. PULMICORT TURBUHALER [Concomitant]
     Active Substance: BUDESONIDE
  37. FUROSEMIDE. [Concomitant]
     Active Substance: FUROSEMIDE
  38. LANTUS [Concomitant]
     Active Substance: INSULIN GLARGINE
  39. SPIRONOLACTONE. [Concomitant]
     Active Substance: SPIRONOLACTONE
  40. OXYCODONE AND ACETAMINOPHEN [Concomitant]
     Active Substance: ACETAMINOPHEN\OXYCODONE HYDROCHLORIDE
  41. CALCIUM [Concomitant]
     Active Substance: CALCIUM
     Indication: SUPPLEMENTATION THERAPY
  42. FAMOTIDINE. [Concomitant]
     Active Substance: FAMOTIDINE
     Dosage: UNK
  43. PROTONIX [Suspect]
     Active Substance: PANTOPRAZOLE SODIUM
     Indication: PRODUCT USED FOR UNKNOWN INDICATION
     Dosage: UNK
     Route: 048
  44. LANSOPRAZOLE. [Suspect]
     Active Substance: LANSOPRAZOLE
     Indication: GASTROOESOPHAGEAL REFLUX DISEASE
     Dosage: 30 MILLIGRAM, BID
     Route: 048
     Dates: start: 20120627, end: 20140211
  45. NEXIUM [Suspect]
     Active Substance: ESOMEPRAZOLE MAGNESIUM
     Indication: GASTROOESOPHAGEAL REFLUX DISEASE
     Dosage: 40 MILLIGRAM, BID
     Route: 048
     Dates: start: 20110104, end: 20120618
  46. ALBUTEROL                          /00139501/ [Concomitant]
     Active Substance: ALBUTEROL
  47. METOLAZONE. [Concomitant]
     Active Substance: METOLAZONE
  48. METFORMIN [Concomitant]
     Active Substance: METFORMIN HYDROCHLORIDE
  49. FLUTICASONE. [Concomitant]
     Active Substance: FLUTICASONE
  50. CEFDINIR. [Concomitant]
     Active Substance: CEFDINIR
  51. CEPHALEXIN                         /00145501/ [Concomitant]
     Active Substance: CEPHALEXIN
  52. DILTIAZEM. [Concomitant]
     Active Substance: DILTIAZEM
  53. AMOXICILLIN TRIHYDRATE [Concomitant]
     Active Substance: AMOXICILLIN
  54. AXID AR [Concomitant]
     Active Substance: NIZATIDINE
     Indication: SUPPLEMENTATION THERAPY
  55. TRAMADOL. [Concomitant]
     Active Substance: TRAMADOL
  56. GENTAMICIN. [Concomitant]
     Active Substance: GENTAMICIN
  57. TIZANIDINE. [Concomitant]
     Active Substance: TIZANIDINE
  58. BUDESONIDE. [Concomitant]
     Active Substance: BUDESONIDE

REACTIONS (3)
  - Renal failure [Fatal]
  - End stage renal disease [Fatal]
  - Rebound acid hypersecretion [Fatal]

NARRATIVE: CASE EVENT DATE: 2011
